FAERS Safety Report 7583286-4 (Version None)
Quarter: 2011Q2

REPORT INFORMATION
  Report Type: 
  Country: None (occurrence: None)
  Receive Date: 20110627
  Receipt Date: 20110627
  Transmission Date: 20111010
  Serious: Yes (Death)
  Sender: FDA-Public Use
  Company Number: None

PATIENT
  Age: 68 Year
  Sex: Male

DRUGS (1)
  1. DALFAMPRIDINE -AMPYRA- [Suspect]
     Dosage: 10 MG

REACTIONS (6)
  - URINARY TRACT INFECTION [None]
  - TUBULOINTERSTITIAL NEPHRITIS [None]
  - INFECTION [None]
  - MENTAL STATUS CHANGES [None]
  - SKIN GRAFT [None]
  - WOUND [None]
